FAERS Safety Report 17580875 (Version 3)
Quarter: 2020Q2

REPORT INFORMATION
  Report Type: Spontaneous
  Country: US (occurrence: US)
  Receive Date: 20200325
  Receipt Date: 20200623
  Transmission Date: 20200713
  Serious: Yes (Hospitalization, Other)
  Sender: FDA-Public Use
  Company Number: US-ALEXION PHARMACEUTICALS INC.-A202003921

PATIENT
  Age: 46 Year
  Sex: Female

DRUGS (3)
  1. SOLIRIS [Suspect]
     Active Substance: ECULIZUMAB
     Dosage: UNK, Q2W
     Route: 042
     Dates: end: 202001
  2. ULTOMIRIS [Suspect]
     Active Substance: RAVULIZUMAB-CWVZ
     Indication: PAROXYSMAL NOCTURNAL HAEMOGLOBINURIA
     Dosage: UNK, ONCE EVERY 2 MONTH
     Route: 065
     Dates: start: 201910, end: 202001
  3. SOLIRIS [Suspect]
     Active Substance: ECULIZUMAB
     Indication: PAROXYSMAL NOCTURNAL HAEMOGLOBINURIA
     Dosage: UNK, Q2W
     Route: 042
     Dates: start: 20170917

REACTIONS (14)
  - Blood test abnormal [Recovered/Resolved]
  - Therapeutic product effect decreased [Unknown]
  - Transfusion [Unknown]
  - Poor peripheral circulation [Unknown]
  - Ill-defined disorder [Unknown]
  - Asthenia [Recovered/Resolved]
  - Fatigue [Unknown]
  - Pain [Unknown]
  - Drug ineffective [Unknown]
  - Bone marrow transplant [Recovering/Resolving]
  - Malaise [Unknown]
  - Viral infection [Recovered/Resolved]
  - Pain in extremity [Unknown]
  - Depression [Unknown]

NARRATIVE: CASE EVENT DATE: 201804
